FAERS Safety Report 14193547 (Version 1)
Quarter: 2017Q4

REPORT INFORMATION
  Report Type: Spontaneous
  Country: US (occurrence: US)
  Receive Date: 20171115
  Receipt Date: 20171115
  Transmission Date: 20180321
  Serious: No
  Sender: FDA-Public Use
  Company Number: US-BAUSCH-BL-2017-003421

PATIENT
  Age: 62 Year
  Sex: Female
  Weight: 127.12 kg

DRUGS (1)
  1. XENAZINE [Suspect]
     Active Substance: TETRABENAZINE
     Indication: TARDIVE DYSKINESIA
     Route: 048
     Dates: start: 201605, end: 20170131

REACTIONS (5)
  - Speech disorder [Not Recovered/Not Resolved]
  - Off label use [Recovered/Resolved]
  - Treatment noncompliance [Unknown]
  - Therapeutic response unexpected [Unknown]
  - Movement disorder [Not Recovered/Not Resolved]

NARRATIVE: CASE EVENT DATE: 201603
